FAERS Safety Report 18792869 (Version 1)
Quarter: 2021Q1

REPORT INFORMATION
  Report Type: Report from Study
  Country: CH (occurrence: CH)
  Receive Date: 20210127
  Receipt Date: 20210127
  Transmission Date: 20210419
  Serious: Yes (Hospitalization)
  Sender: FDA-Public Use
  Company Number: CH-ROCHE-2752062

PATIENT
  Age: 74 Year
  Sex: Male
  Weight: 90.5 kg

DRUGS (5)
  1. PEMETREXED. [Suspect]
     Active Substance: PEMETREXED
     Indication: PLEURAL MESOTHELIOMA MALIGNANT
     Dosage: DATE OF MOST RECENT DOSE (1000 MG) OF PEMETREXED PRIOR TO SAE ONSET: 06/MAY/2020
     Route: 042
     Dates: start: 20200121
  2. BEVACIZUMAB. [Suspect]
     Active Substance: BEVACIZUMAB
     Indication: PLEURAL MESOTHELIOMA MALIGNANT
     Dosage: DATE OF MOST RECENT DOSE 1300 MG OF BEVACIZUMAB PRIOR TO ONSET OF EVENT: 11/FEB/2020
     Route: 042
     Dates: start: 20200121
  3. APIXABAN [Concomitant]
     Active Substance: APIXABAN
  4. ATEZOLIZUMAB. [Suspect]
     Active Substance: ATEZOLIZUMAB
     Indication: PLEURAL MESOTHELIOMA MALIGNANT
     Dosage: MOST RECENT DOSE DOSE OF ATEZOLIZUMAB PRIOR TO SAE ONSET: 01/DEC/2020
     Route: 041
     Dates: start: 20200121
  5. CARBOPLATIN. [Suspect]
     Active Substance: CARBOPLATIN
     Indication: PLEURAL MESOTHELIOMA MALIGNANT
     Dosage: 5, AUC, DATE OF MOST RECENT DOSE 520 MG OF CARBOPLATIN PRIOR TO SAE: 06/MAY/2020
     Route: 042
     Dates: start: 20200121

REACTIONS (1)
  - Aneurysm repair [Recovered/Resolved]

NARRATIVE: CASE EVENT DATE: 20210104
